FAERS Safety Report 6862596-X (Version None)
Quarter: 2010Q3

REPORT INFORMATION
  Report Type: 
  Country: None (occurrence: None)
  Receive Date: 20100716
  Receipt Date: 20100702
  Transmission Date: 20110219
  Serious: Yes (Other)
  Sender: FDA-Public Use
  Company Number: 1000012683

PATIENT
  Age: 37 Year
  Sex: Male

DRUGS (1)
  1. LEXAPRO [Suspect]
     Indication: AFFECTIVE DISORDER
     Dosage: 20 MG (20 MG, 1 IN 1 D), ORAL
     Route: 048
     Dates: start: 20070101, end: 20100603

REACTIONS (2)
  - INFERTILITY MALE [None]
  - SPERM ANALYSIS ABNORMAL [None]
